FAERS Safety Report 8962201 (Version 3)
Quarter: 2013Q1

REPORT INFORMATION
  Report Type: Spontaneous
  Country: US (occurrence: US)
  Receive Date: 20121212
  Receipt Date: 20130115
  Transmission Date: 20140127
  Serious: Yes (Other)
  Sender: FDA-Public Use
  Company Number: US-GILEAD-2012-0066056

PATIENT
  Age: 54 Year
  Sex: Female

DRUGS (3)
  1. LETAIRIS [Suspect]
     Indication: PULMONARY ARTERIAL HYPERTENSION
     Dosage: 5 MG, UNK
     Route: 048
     Dates: start: 20121120
  2. LETAIRIS [Suspect]
     Dates: start: 20121121
  3. ADCIRCA [Concomitant]
     Dosage: UNK

REACTIONS (2)
  - Pneumonia [Unknown]
  - Viral infection [Unknown]
